FAERS Safety Report 18494050 (Version 1)
Quarter: 2020Q4

REPORT INFORMATION
  Report Type: Other
  Country: PL (occurrence: PL)
  Receive Date: 20201112
  Receipt Date: 20201112
  Transmission Date: 20210114
  Serious: Yes (Other)
  Sender: FDA-Public Use
  Company Number: PL-ROCHE-2709379

PATIENT
  Age: 53 Year
  Sex: Female

DRUGS (1)
  1. BEVACIZUMAB. [Suspect]
     Active Substance: BEVACIZUMAB
     Indication: HEREDITARY HAEMORRHAGIC TELANGIECTASIA
     Route: 042

REACTIONS (7)
  - Intentional product use issue [Unknown]
  - Weight decreased [Unknown]
  - Gastrointestinal ulcer haemorrhage [Unknown]
  - Decreased appetite [Unknown]
  - Abdominal pain [Unknown]
  - Off label use [Unknown]
  - Respiratory tract haemorrhage [Unknown]
